FAERS Safety Report 5127152-2 (Version None)
Quarter: 2006Q4

REPORT INFORMATION
  Report Type: 
  Country: None (occurrence: None)
  Receive Date: 20061010
  Receipt Date: 20060925
  Transmission Date: 20070319
  Serious: Yes (Death, Life-Threatening)
  Sender: FDA-Public Use
  Company Number: 2006072199

PATIENT
  Age: 70 Year
  Sex: Female
  Weight: 40 kg

DRUGS (11)
  1. ZYVOX [Suspect]
     Indication: PNEUMONIA
     Dosage: 1200 MG (600 MG, 2 IN 1 D), INTRAVENOUS
     Route: 042
     Dates: start: 20050828, end: 20050904
  2. NOREPINEPHRINE BITARTRATE [Concomitant]
  3. MIDAZOLAM HCL [Concomitant]
  4. HYDROCORTONE (HYDROCORTISONE) [Concomitant]
  5. TOBRAMYCIN SULFATE [Concomitant]
  6. PENMALIN (PIPERACILLIN SODIUM) [Concomitant]
  7. FLUCONAZOLE [Concomitant]
  8. PIPERACILLIN SODIUM AND TAZOBACTAM SODIUM [Concomitant]
  9. PAZUFLOXACIN MESILATE (PAZUFLOXACIN MESILATE) [Concomitant]
  10. CEFTRIAXONE [Concomitant]
  11. VANCOMYCIN HYDROCHLORIDE [Concomitant]

REACTIONS (9)
  - ACUTE RESPIRATORY DISTRESS SYNDROME [None]
  - DRUG INEFFECTIVE [None]
  - HEPATIC ENZYME INCREASED [None]
  - INFECTION [None]
  - LUNG INFECTION PSEUDOMONAL [None]
  - PLATELET COUNT DECREASED [None]
  - PNEUMONIA [None]
  - RENAL FAILURE [None]
  - SEPTIC SHOCK [None]
